FAERS Safety Report 5888008-0 (Version None)
Quarter: 2008Q3

REPORT INFORMATION
  Report Type: 
  Country: None (occurrence: None)
  Receive Date: 20080916
  Receipt Date: 20080829
  Transmission Date: 20090109
  Serious: Yes (Hospitalization)
  Sender: FDA-Public Use
  Company Number: A-US2008-21243

PATIENT
  Age: 74 Year
  Sex: Female
  Weight: 87 kg

DRUGS (21)
  1. 11092004 [Suspect]
     Indication: PULMONARY HYPERTENSION
     Dosage: 5 UG, 6 X DAY, RESPIRATORY
     Route: 055
     Dates: start: 20041109, end: 20070410
  2. 11092004 [Suspect]
     Indication: PULMONARY HYPERTENSION
     Dosage: 5 UG, 6 X DAY, RESPIRATORY
     Route: 055
     Dates: start: 20070410
  3. TRACLEER [Suspect]
     Indication: PULMONARY HYPERTENSION
     Dosage: 125 MG, ORAL
     Route: 048
     Dates: start: 20020814, end: 20080731
  4. DIGOXIN [Suspect]
     Indication: PULMONARY HYPERTENSION
     Dosage: 0.25 MG, QD
     Dates: start: 20030123, end: 20080701
  5. TYLENOL (CAPLET) [Suspect]
     Indication: INSOMNIA
     Dosage: ORAL
     Route: 048
     Dates: start: 20080630, end: 20080731
  6. NYQUIL(PARACETAMOL, DEXTROMETHORPHAN HYDROBROMIDE, EPHEDRINE SULFATE, [Suspect]
     Indication: DISCOMFORT
     Dosage: ORAL
     Route: 048
     Dates: start: 20080630, end: 20080731
  7. ACETAMINOPHEN [Suspect]
     Indication: DISCOMFORT
     Dosage: ORAL
     Route: 048
     Dates: start: 20080630, end: 20080731
  8. SYNTHROID [Concomitant]
  9. LORAZEPAM [Concomitant]
  10. MAXZIDE [Concomitant]
  11. COZAAR [Concomitant]
  12. SPIRONOLACTONE [Concomitant]
  13. MULTIVITAMIN [Concomitant]
  14. CALCIUM (CALCIUM CARBONATE) [Concomitant]
  15. URSODIOL [Concomitant]
  16. NASACORT [Concomitant]
  17. AMBIEN [Concomitant]
  18. OXYGEN (OXYGEN) [Concomitant]
  19. LEXAPRO [Concomitant]
  20. WARFARIN SODIUM [Concomitant]
  21. DARVOCET [Concomitant]

REACTIONS (21)
  - ALPHA-1 ANTI-TRYPSIN INCREASED [None]
  - ANTINUCLEAR ANTIBODY POSITIVE [None]
  - ANXIETY [None]
  - AUTOIMMUNE HEPATITIS [None]
  - CAROTID ARTERY DISEASE [None]
  - CHRONIC HEPATITIS [None]
  - COUGH [None]
  - DEPRESSION [None]
  - DYSPNOEA [None]
  - HEPATIC CIRRHOSIS [None]
  - HEPATIC CONGESTION [None]
  - HEPATIC STEATOSIS [None]
  - HEPATITIS [None]
  - HEPATOTOXICITY [None]
  - MYOSITIS [None]
  - PRURITUS [None]
  - PULMONARY HYPERTENSION [None]
  - RETCHING [None]
  - RHEUMATOID FACTOR INCREASED [None]
  - TEMPERATURE INTOLERANCE [None]
  - THERAPEUTIC AGENT TOXICITY [None]
